FAERS Safety Report 13298172 (Version 2)
Quarter: 2017Q1

REPORT INFORMATION
  Report Type: Spontaneous
  Country: GB (occurrence: GB)
  Receive Date: 20170306
  Receipt Date: 20170330
  Transmission Date: 20170428
  Serious: Yes (Hospitalization)
  Sender: FDA-Public Use
  Company Number: GB-NOVOPROD-533433

PATIENT
  Age: 2 Year
  Sex: Female

DRUGS (1)
  1. NOVORAPID [Suspect]
     Active Substance: INSULIN ASPART
     Indication: TYPE 1 DIABETES MELLITUS
     Dosage: 6-10 U APPROX QD
     Route: 058

REACTIONS (4)
  - Hypoglycaemia [Unknown]
  - Blood glucose increased [Unknown]
  - Gastrointestinal infection [Unknown]
  - Liquid product physical issue [Unknown]
